FAERS Safety Report 5160821-7 (Version None)
Quarter: 2006Q4

REPORT INFORMATION
  Report Type: 
  Country: None (occurrence: None)
  Receive Date: 20061121
  Receipt Date: 20061107
  Transmission Date: 20070319
  Serious: Yes (Hospitalization)
  Sender: FDA-Public Use
  Company Number: 2006US002546

PATIENT
  Age: 26 Year
  Sex: Male

DRUGS (9)
  1. PROGRAF [Suspect]
     Indication: PROPHYLAXIS AGAINST TRANSPLANT REJECTION
     Dosage: 0.5 MG, UID/QD,
     Dates: start: 20040201
  2. EPREX [Suspect]
     Indication: NEPHROGENIC ANAEMIA
     Dosage: SEE IMAGE
     Dates: start: 20051213, end: 20060106
  3. EPREX [Suspect]
     Indication: NEPHROGENIC ANAEMIA
     Dosage: SEE IMAGE
     Dates: start: 20060909
  4. CELLCEPT [Suspect]
     Dosage: 500 MG, BID,
     Dates: start: 20040201
  5. IRON (IRON) [Concomitant]
  6. TUMS (MAGNESIUM TRISILICATE, MAGNESIUM CARBONATE) [Concomitant]
  7. PREDNISONE TAB [Concomitant]
  8. CARDIZEM [Concomitant]
  9. RAPAMYCIN (SIROLIMUS) [Concomitant]

REACTIONS (9)
  - ANTIBODY TEST POSITIVE [None]
  - APLASIA PURE RED CELL [None]
  - DRUG INEFFECTIVE [None]
  - HAEMODIALYSIS [None]
  - NEPHROGENIC ANAEMIA [None]
  - OEDEMA [None]
  - PALLOR [None]
  - THERAPEUTIC RESPONSE DECREASED [None]
  - TRANSFERRIN SATURATION DECREASED [None]
